FAERS Safety Report 21694880 (Version 1)
Quarter: 2022Q4

REPORT INFORMATION
  Report Type: Spontaneous
  Country: US (occurrence: US)
  Receive Date: 20221207
  Receipt Date: 20221207
  Transmission Date: 20230112
  Serious: Yes (Other)
  Sender: FDA-Public Use
  Company Number: US-OTSUKA-2022_052870

PATIENT
  Sex: Male

DRUGS (2)
  1. ABILIFY MYCITE [Suspect]
     Active Substance: ARIPIPRAZOLE
     Indication: Paranoia
     Dosage: UNK
     Route: 065
  2. ABILIFY MYCITE [Suspect]
     Active Substance: ARIPIPRAZOLE
     Indication: Illusion

REACTIONS (4)
  - Hallucination, auditory [Not Recovered/Not Resolved]
  - Illusion [Not Recovered/Not Resolved]
  - Paranoia [Not Recovered/Not Resolved]
  - Product use in unapproved indication [Unknown]
